FAERS Safety Report 6497171-2 (Version None)
Quarter: 2009Q4

REPORT INFORMATION
  Report Type: 
  Country: None (occurrence: None)
  Receive Date: 20091215
  Receipt Date: 20090519
  Transmission Date: 20100525
  Serious: No
  Sender: FDA-Public Use
  Company Number: A0783767A

PATIENT
  Age: 66 Year
  Sex: Male

DRUGS (6)
  1. AVODART [Suspect]
     Indication: BENIGN PROSTATIC HYPERPLASIA
     Dosage: 1CAP PER DAY
     Route: 048
     Dates: start: 20080201, end: 20090301
  2. SIMVASTATIN [Concomitant]
  3. HYDROCHLOROTHIAZIDE [Concomitant]
  4. ASPIRIN [Concomitant]
  5. VITAMINS [Concomitant]
  6. FLAX SEED OIL [Concomitant]

REACTIONS (7)
  - BREAST ENLARGEMENT [None]
  - BREAST TENDERNESS [None]
  - ERECTILE DYSFUNCTION [None]
  - GENITAL RASH [None]
  - HYPERSENSITIVITY [None]
  - LIBIDO DECREASED [None]
  - PRURITUS [None]
